FAERS Safety Report 13415244 (Version 1)
Quarter: 2017Q2

REPORT INFORMATION
  Report Type: Spontaneous
  Country: US (occurrence: US)
  Receive Date: 20170406
  Receipt Date: 20170406
  Transmission Date: 20170830
  Serious: Yes (Death)
  Sender: FDA-Public Use
  Company Number: US-INCYTE CORPORATION-2017IN002656

PATIENT
  Age: 69 Year
  Sex: Male

DRUGS (1)
  1. JAKAFI [Suspect]
     Active Substance: RUXOLITINIB
     Indication: MYELOFIBROSIS
     Dosage: 20 MG IN AM, AND 10 MG AT PM
     Route: 048
     Dates: start: 20160617

REACTIONS (1)
  - Death [Fatal]

NARRATIVE: CASE EVENT DATE: 20170128
